FAERS Safety Report 14510756 (Version 2)
Quarter: 2018Q1

REPORT INFORMATION
  Report Type: Report from Study
  Country: BE (occurrence: BE)
  Receive Date: 20180209
  Receipt Date: 20180216
  Transmission Date: 20180509
  Serious: Yes (Hospitalization)
  Sender: FDA-Public Use
  Company Number: BE-ASTRAZENECA-2018SE06761

PATIENT
  Age: 65 Year
  Sex: Female
  Weight: 76.1 kg

DRUGS (15)
  1. LY3022855 [Suspect]
     Active Substance: INVESTIGATIONAL PRODUCT
     Indication: OVARIAN CANCER
     Dosage: 100 MG CYCLICAL
     Route: 042
     Dates: end: 20180103
  2. MEDROL [Concomitant]
     Active Substance: METHYLPREDNISOLONE
     Route: 065
     Dates: start: 20180112
  3. RAMIPRIL. [Concomitant]
     Active Substance: RAMIPRIL
     Route: 065
     Dates: start: 20180105
  4. MOVICOL [Concomitant]
     Active Substance: POLYETHYLENE GLYCOL 3350\POTASSIUM CHLORIDE\SODIUM BICARBONATE\SODIUM CHLORIDE
     Route: 065
     Dates: start: 20180105
  5. DURVALUMAB. [Suspect]
     Active Substance: DURVALUMAB
     Indication: OVARIAN CANCER
     Dosage: 750 MG CYCLICAL
     Route: 042
     Dates: end: 20180124
  6. MAGNESIUM CITRATE. [Concomitant]
     Active Substance: MAGNESIUM CITRATE
     Route: 065
     Dates: start: 20170721
  7. DURVALUMAB. [Suspect]
     Active Substance: DURVALUMAB
     Indication: OVARIAN CANCER
     Dosage: 750 MG CYCLICAL
     Route: 042
     Dates: start: 20171220
  8. DURVALUMAB. [Suspect]
     Active Substance: DURVALUMAB
     Indication: OVARIAN CANCER
     Dosage: 750 MG CYCLICAL
     Route: 042
     Dates: end: 20180103
  9. LY3022855 [Suspect]
     Active Substance: INVESTIGATIONAL PRODUCT
     Indication: OVARIAN CANCER
     Dosage: 100 MG CYCLICAL
     Route: 042
     Dates: start: 20180104, end: 20180124
  10. LY3022855 [Suspect]
     Active Substance: INVESTIGATIONAL PRODUCT
     Indication: OVARIAN CANCER
     Dosage: 100 MG CYCLICAL
     Route: 042
     Dates: start: 20171220
  11. LITICAN [Concomitant]
     Active Substance: ALIZAPRIDE HYDROCHLORIDE
     Route: 065
     Dates: start: 20170721
  12. COSOPT OCUMET.PLUS [Concomitant]
     Route: 065
     Dates: start: 20171222
  13. TRAMADOL. [Concomitant]
     Active Substance: TRAMADOL
     Route: 065
     Dates: start: 20180103
  14. LORMETAZEPAM [Concomitant]
     Active Substance: LORMETAZEPAM
     Route: 065
     Dates: start: 20180103
  15. BISOPROLOL [Concomitant]
     Active Substance: BISOPROLOL
     Route: 065

REACTIONS (3)
  - Hypersensitivity [Unknown]
  - Stress cardiomyopathy [Recovered/Resolved]
  - Respiratory tract infection [Recovered/Resolved]

NARRATIVE: CASE EVENT DATE: 20180102
